FAERS Safety Report 26153536 (Version 1)
Quarter: 2025Q4

REPORT INFORMATION
  Report Type: Spontaneous
  Country: JP (occurrence: JP)
  Receive Date: 20251214
  Receipt Date: 20251214
  Transmission Date: 20260117
  Serious: Yes (Death, Hospitalization)
  Sender: ASTELLAS
  Company Number: JP-ASTELLAS-2025-AER-069173

PATIENT
  Age: 76 Year
  Sex: Male
  Weight: 64 kg

DRUGS (18)
  1. PADCEV [Suspect]
     Active Substance: ENFORTUMAB VEDOTIN-EJFV
     Indication: Transitional cell carcinoma metastatic
     Route: 042
     Dates: start: 20250501, end: 20250501
  2. PADCEV [Suspect]
     Active Substance: ENFORTUMAB VEDOTIN-EJFV
     Route: 042
     Dates: start: 20250508, end: 20250508
  3. PADCEV [Suspect]
     Active Substance: ENFORTUMAB VEDOTIN-EJFV
     Route: 042
     Dates: start: 20250626, end: 20250626
  4. PADCEV [Suspect]
     Active Substance: ENFORTUMAB VEDOTIN-EJFV
     Route: 042
     Dates: start: 20250703, end: 20250703
  5. PREDONINE [Suspect]
     Active Substance: PREDNISOLONE
     Indication: Immune-mediated hepatic disorder
     Dosage: 60 MG (DOSE TAPERED)
     Route: 042
     Dates: start: 20250524, end: 20250529
  6. PREDONINE [Suspect]
     Active Substance: PREDNISOLONE
     Route: 042
     Dates: start: 20250711
  7. PREDONINE [Suspect]
     Active Substance: PREDNISOLONE
     Route: 042
     Dates: start: 20250716
  8. KEYTRUDA [Suspect]
     Active Substance: PEMBROLIZUMAB
     Indication: Transitional cell carcinoma metastatic
     Route: 042
     Dates: start: 20250501, end: 20250501
  9. LOXOPROFEN SODIUM TABLET [Concomitant]
     Indication: Product used for unknown indication
     Route: 065
     Dates: start: 20250626, end: 20250725
  10. OXYCONTIN TR TABLET [Concomitant]
     Indication: Product used for unknown indication
     Route: 065
     Dates: start: 20250626, end: 20250725
  11. MAGNESIUM OXIDE [Concomitant]
     Active Substance: MAGNESIUM OXIDE
     Indication: Product used for unknown indication
     Route: 065
     Dates: start: 20250626, end: 20250725
  12. Symproic Tablet [Concomitant]
     Indication: Product used for unknown indication
     Route: 065
     Dates: start: 20250626, end: 20250727
  13. SILODOSIN OD Tablet [Concomitant]
     Indication: Product used for unknown indication
     Route: 065
     Dates: start: 20250626, end: 20250725
  14. REBAMIPIDE [Concomitant]
     Active Substance: REBAMIPIDE
     Indication: Product used for unknown indication
     Route: 065
     Dates: start: 20250626, end: 20250725
  15. Solu-Medrol for Intravenous Use 1000mg [Concomitant]
     Indication: Pneumocystis jirovecii pneumonia
     Route: 065
     Dates: start: 20250708, end: 20250710
  16. DAIPHEN TABLET [Concomitant]
     Indication: Pneumocystis jirovecii pneumonia
     Route: 065
     Dates: start: 20250708, end: 20250723
  17. ETIZOLAM TABLET [Concomitant]
     Indication: Product used for unknown indication
     Route: 065
     Dates: start: 20250713, end: 20250716
  18. ETIZOLAM TABLET [Concomitant]
     Route: 065
     Dates: start: 20250709, end: 20250709

REACTIONS (3)
  - Pneumocystis jirovecii pneumonia [Fatal]
  - Acute respiratory distress syndrome [Fatal]
  - Interstitial lung disease [Fatal]

NARRATIVE: CASE EVENT DATE: 20250705
